FAERS Safety Report 4445067-X (Version None)
Quarter: 2004Q3

REPORT INFORMATION
  Report Type: 
  Country: None (occurrence: None)
  Receive Date: 20040908
  Receipt Date: 20040908
  Transmission Date: 20050211
  Serious: Yes (Hospitalization)
  Sender: FDA-Public Use
  Company Number: None

PATIENT
  Sex: Male

DRUGS (6)
  1. RISPERDAL CONSTA [Suspect]
     Indication: SCHIZOPHRENIA
     Dosage: 25 MG Q 2 WEEKS IM
     Route: 030
     Dates: start: 20040511, end: 20040902
  2. RISPERIDONE [Suspect]
     Indication: SCHIZOPHRENIA
     Dosage: 2 MG ORAL HS
     Route: 048
     Dates: start: 20030802, end: 20040814
  3. FLUOXETINE [Concomitant]
  4. CYPROHEPTIDINE [Concomitant]
  5. BACLOFEN [Concomitant]
  6. BENADRYL [Concomitant]

REACTIONS (3)
  - CEREBROVASCULAR ACCIDENT [None]
  - DYSSTASIA [None]
  - FAECAL INCONTINENCE [None]
